FAERS Safety Report 25993739 (Version 2)
Quarter: 2025Q4

REPORT INFORMATION
  Report Type: Spontaneous
  Country: EU (occurrence: EU)
  Receive Date: 20251104
  Receipt Date: 20251119
  Transmission Date: 20260117
  Serious: Yes (Death, Life-Threatening, Hospitalization, Other)
  Sender: ALKEM
  Company Number: None

PATIENT
  Age: 26 Year
  Sex: Female
  Weight: 50 kg

DRUGS (7)
  1. IBUPROFEN [Suspect]
     Active Substance: IBUPROFEN
     Indication: Suicidal ideation
     Dosage: 25200 MILLIGRAM, ONCE (504 MG/KG)
     Route: 048
  2. ASPIRIN [Suspect]
     Active Substance: ASPIRIN
     Indication: Suicidal ideation
     Dosage: 5000 MILLIGRAM, ONCE (100 MG/KG)
     Route: 048
  3. CAFFEINE [Suspect]
     Active Substance: CAFFEINE
     Indication: Suicidal ideation
     Dosage: 1000 MILLIGRAM, ONCE (20 MG/KG)
     Route: 048
  4. ACETAMINOPHEN [Suspect]
     Active Substance: ACETAMINOPHEN
     Indication: Suicidal ideation
     Dosage: 8000 MILLIGRAM, ONCE (160 MG/KG)
     Route: 048
  5. AGOMELATINE [Suspect]
     Active Substance: AGOMELATINE
     Indication: Suicidal ideation
     Dosage: 3150 MILLIGRAM, ONCE (63 MG/KG)
     Route: 048
  6. PAROXETINE [Suspect]
     Active Substance: PAROXETINE
     Indication: Suicidal ideation
     Dosage: 4000 MILLIGRAM, ONCE (80 MG/KG)
     Route: 048
  7. PAROXETINE [Suspect]
     Active Substance: PAROXETINE
     Dosage: UNK
     Route: 048

REACTIONS (23)
  - Serotonin syndrome [Fatal]
  - Acute respiratory distress syndrome [Fatal]
  - Completed suicide [Fatal]
  - Pneumonia aspiration [Fatal]
  - Respiratory failure [Fatal]
  - Intentional overdose [Fatal]
  - Toxicity to various agents [Fatal]
  - Toxicity to various agents [Fatal]
  - Bezoar [Recovered/Resolved]
  - Cyanosis [Unknown]
  - Delirium [Fatal]
  - Clonus [Fatal]
  - Mydriasis [Fatal]
  - Hypotension [Fatal]
  - Disorientation [Fatal]
  - Agitation [Fatal]
  - Pyrexia [Fatal]
  - Lung infiltration [Fatal]
  - Lividity [Fatal]
  - Tracheal injury [Fatal]
  - Somnolence [Fatal]
  - Tachycardia [Fatal]
  - Drug ineffective [Fatal]
